FAERS Safety Report 9474581 (Version 1)
Quarter: 2013Q3

REPORT INFORMATION
  Report Type: Spontaneous
  Country: US (occurrence: US)
  Receive Date: 20130823
  Receipt Date: 20130823
  Transmission Date: 20140515
  Serious: Yes (Death)
  Sender: FDA-Public Use
  Company Number: US-GLAXOSMITHKLINE-A1038320A

PATIENT
  Age: 80 Year
  Sex: Male

DRUGS (4)
  1. JALYN [Suspect]
     Indication: BENIGN PROSTATIC HYPERPLASIA
     Route: 065
  2. PLAVIX [Concomitant]
  3. GLUCOTROL [Concomitant]
  4. MICARDIS [Concomitant]

REACTIONS (3)
  - Hepatic cancer metastatic [Fatal]
  - Metastases to bone [Fatal]
  - Metastases to lung [Fatal]
